FAERS Safety Report 19144127 (Version 1)
Quarter: 2021Q2

REPORT INFORMATION
  Report Type: Spontaneous
  Country: US (occurrence: US)
  Receive Date: 20210416
  Receipt Date: 20210416
  Transmission Date: 20210717
  Serious: No
  Sender: FDA-Public Use
  Company Number: US-ASTRAZENECA-2021A189590

PATIENT
  Sex: Female

DRUGS (1)
  1. SYMBICORT [Suspect]
     Active Substance: BUDESONIDE\FORMOTEROL FUMARATE DIHYDRATE
     Dosage: SYMBICORT 160?4.5 2 PUFFS TWICE A DAY
     Route: 055
     Dates: start: 202012

REACTIONS (9)
  - Gait disturbance [Unknown]
  - Intentional product misuse [Unknown]
  - Product dose omission issue [Unknown]
  - Fall [Unknown]
  - Wrong technique in device usage process [Unknown]
  - Device malfunction [Unknown]
  - Pain in extremity [Unknown]
  - Contusion [Unknown]
  - Device delivery system issue [Unknown]
